FAERS Safety Report 5655488-5 (Version None)
Quarter: 2008Q1

REPORT INFORMATION
  Report Type: 
  Country: None (occurrence: None)
  Receive Date: 20080307
  Receipt Date: 20080228
  Transmission Date: 20080703
  Serious: Yes (Hospitalization, Other)
  Sender: FDA-Public Use
  Company Number: AT-ELI_LILLY_AND_COMPANY-AT200711001134

PATIENT
  Sex: Male
  Weight: 85 kg

DRUGS (2)
  1. HUMALOG MIX 50/50 [Suspect]
     Dosage: 36-42 IU, DAILY (1/D)
     Route: 058
  2. AMBROBENE [Concomitant]
     Indication: INCREASED UPPER AIRWAY SECRETION
     Dosage: 4 ML, 3/D

REACTIONS (4)
  - BLOOD GLUCOSE INCREASED [None]
  - DRUG INEFFECTIVE [None]
  - INGUINAL HERNIA [None]
  - PNEUMONIA [None]
